FAERS Safety Report 11105706 (Version 1)
Quarter: 2015Q2

REPORT INFORMATION
  Report Type: Spontaneous
  Country: US (occurrence: None)
  Receive Date: 20150511
  Receipt Date: 20150511
  Transmission Date: 20150821
  Serious: Yes (Death, Hospitalization)
  Sender: FDA-Public Use
  Company Number: None

PATIENT
  Age: 62 Year
  Sex: Female
  Weight: 86.64 kg

DRUGS (4)
  1. CISPLATIN. [Suspect]
     Active Substance: CISPLATIN
     Dates: start: 20140929
  2. ETOPOSIDE (VP-16) [Suspect]
     Active Substance: ETOPOSIDE
     Indication: DYSPNOEA
     Dates: start: 20141001
  3. ETOPOSIDE (VP-16) [Suspect]
     Active Substance: ETOPOSIDE
     Indication: FATIGUE
     Dates: start: 20141001
  4. ETOPOSIDE (VP-16) [Suspect]
     Active Substance: ETOPOSIDE
     Indication: DEATH
     Dates: start: 20141001

REACTIONS (8)
  - Atelectasis [None]
  - Platelet count decreased [None]
  - Blood creatinine increased [None]
  - Asthenia [None]
  - Fatigue [None]
  - Decreased appetite [None]
  - Pulmonary embolism [None]
  - Metastases to bone [None]
